FAERS Safety Report 18044563 (Version 1)
Quarter: 2020Q3

REPORT INFORMATION
  Report Type: Spontaneous
  Country: US (occurrence: US)
  Receive Date: 20200720
  Receipt Date: 20200720
  Transmission Date: 20201103
  Serious: Yes (Hospitalization)
  Sender: FDA-Public Use
  Company Number: None

PATIENT
  Age: 25 Year
  Sex: Male

DRUGS (1)
  1. ALDURAZYME [Suspect]
     Active Substance: LARONIDASE
     Indication: MUCOPOLYSACCHARIDOSIS I
     Dosage: ?          OTHER FREQUENCY:ONCE A WEEK;?
     Route: 042
     Dates: start: 20180505

REACTIONS (4)
  - Brain operation [None]
  - Therapy interrupted [None]
  - Post procedural complication [None]
  - Aphasia [None]

NARRATIVE: CASE EVENT DATE: 20200713
